FAERS Safety Report 24201749 (Version 1)
Quarter: 2024Q3

REPORT INFORMATION
  Report Type: Spontaneous
  Country: SK (occurrence: SK)
  Receive Date: 20240812
  Receipt Date: 20240812
  Transmission Date: 20241017
  Serious: Yes (Life-Threatening, Hospitalization, Other)
  Sender: MYLAN
  Company Number: None

PATIENT
  Age: 63 Year
  Sex: Male
  Weight: 105 kg

DRUGS (8)
  1. ATORVASTATIN [Suspect]
     Active Substance: ATORVASTATIN
     Indication: Myocardial ischaemia
     Dosage: 1 DOSAGE FORM, QD (0-0-1)
     Route: 048
     Dates: start: 2017, end: 2021
  2. Coryol [Concomitant]
     Indication: Myocardial ischaemia
     Dosage: 1 DOSAGE FORM (1-0-1)
     Route: 048
  3. WARFARIN [Concomitant]
     Active Substance: WARFARIN
     Indication: Atrial fibrillation
     Dosage: 0.5 DOSAGE FORM (0-0.5-0)
     Route: 048
  4. FUROSEMIDE [Concomitant]
     Active Substance: FUROSEMIDE
     Indication: Right ventricular failure
     Dosage: 1 DOSAGE FORM (1-0-0)
     Route: 048
  5. URSODIOL [Concomitant]
     Active Substance: URSODIOL
     Dosage: 2 DOSAGE FORM (0-0-2)
     Route: 048
  6. ALLOPURINOL [Concomitant]
     Active Substance: ALLOPURINOL
     Dosage: 0.5 DOSAGE FORM (0-0.5-0)
     Route: 048
  7. IVABRADINE [Concomitant]
     Active Substance: IVABRADINE
     Indication: Myocardial ischaemia
     Dosage: 0.5 DOSAGE FORM (0.5-0-0.5)
     Route: 048
  8. RAMIPRIL [Concomitant]
     Active Substance: RAMIPRIL
     Indication: Myocardial ischaemia
     Dosage: 1 DOSAGE FORM
     Route: 048

REACTIONS (3)
  - Anuria [Recovered/Resolved]
  - Acute kidney injury [Recovered/Resolved]
  - Rhabdomyolysis [Recovered/Resolved]

NARRATIVE: CASE EVENT DATE: 20210711
